FAERS Safety Report 7050585-4 (Version None)
Quarter: 2010Q4

REPORT INFORMATION
  Report Type: 
  Country: None (occurrence: None)
  Receive Date: 20101018
  Receipt Date: 20101005
  Transmission Date: 20110411
  Serious: Yes (Other)
  Sender: FDA-Public Use
  Company Number: US-ELI_LILLY_AND_COMPANY-US201009001898

PATIENT
  Sex: Female
  Weight: 87.075 kg

DRUGS (14)
  1. BYETTA [Suspect]
     Indication: TYPE 2 DIABETES MELLITUS
     Dosage: 5 UG, 2/D
     Route: 058
     Dates: start: 20100708
  2. BYETTA [Suspect]
     Dosage: 10 UG, 2/D
     Route: 058
  3. LANTUS                             /01483501/ [Concomitant]
     Indication: TYPE 2 DIABETES MELLITUS
     Dosage: 18 U, 2/D
  4. LANTUS                             /01483501/ [Concomitant]
     Dosage: 16 U, 2/D
  5. LANTUS                             /01483501/ [Concomitant]
     Dosage: 13 U, 2/D
  6. ACTOS [Concomitant]
     Indication: TYPE 2 DIABETES MELLITUS
     Dosage: 25 MG, DAILY (1/D)
     Route: 048
  7. ACTOS [Concomitant]
     Dosage: 45 MG, DAILY (1/D)
     Route: 048
  8. ASPIRIN [Concomitant]
     Dosage: 81 MG, DAILY (1/D)
     Route: 048
  9. COREG [Concomitant]
     Dosage: 6.25 MG, 3/D
     Route: 048
  10. FEXOFENADINE HCL [Concomitant]
  11. FISH OIL [Concomitant]
     Route: 048
  12. IRON [Concomitant]
  13. LECITHIN [Concomitant]
     Dosage: 1200 MG, UNK
     Route: 048
  14. ALDACTONE [Concomitant]
     Indication: OEDEMA
     Dosage: 25 MG, UNK

REACTIONS (11)
  - ARTERIAL OCCLUSIVE DISEASE [None]
  - BLOOD GLUCOSE DECREASED [None]
  - CONTUSION [None]
  - DIARRHOEA [None]
  - DIVERTICULITIS [None]
  - FEELING ABNORMAL [None]
  - HYPOGLYCAEMIC UNCONSCIOUSNESS [None]
  - MUSCLE SPASMS [None]
  - NAUSEA [None]
  - OFF LABEL USE [None]
  - WEIGHT DECREASED [None]
